FAERS Safety Report 5019579-4 (Version None)
Quarter: 2006Q2

REPORT INFORMATION
  Report Type: 
  Country: None (occurrence: None)
  Receive Date: 20060530
  Receipt Date: 20060518
  Transmission Date: 20061013
  Serious: Yes (Hospitalization)
  Sender: FDA-Public Use
  Company Number: 200610486BYL

PATIENT
  Age: 85 Year
  Sex: Male
  Weight: 52 kg

DRUGS (8)
  1. AVELOX [Suspect]
     Indication: LOBAR PNEUMONIA
     Dosage: 400 MG, QD, ORAL
     Route: 048
     Dates: start: 20060401, end: 20060407
  2. CIPROFLOXACIN [Suspect]
     Indication: LOBAR PNEUMONIA
     Dosage: SEE IMAGE
     Route: 042
     Dates: start: 20060316, end: 20060322
  3. CIPROFLOXACIN [Suspect]
     Indication: LOBAR PNEUMONIA
     Dosage: SEE IMAGE
     Route: 042
     Dates: start: 20060328, end: 20060331
  4. TAXOTERE [Suspect]
     Indication: PROSTATE CANCER
     Dosage: SEE IMAGE
     Route: 042
     Dates: start: 20060217
  5. TAXOTERE [Suspect]
     Indication: PROSTATE CANCER
     Dosage: SEE IMAGE
     Route: 042
     Dates: start: 20060309
  6. PASIL (PAZUFLOXACIN) [Suspect]
     Indication: LOBAR PNEUMONIA
     Dosage: 500 MG, BID, INTRAVENOUS DRIP
     Route: 041
     Dates: start: 20060322, end: 20060327
  7. ESTRACYT [Concomitant]
  8. DECADRON [Concomitant]

REACTIONS (3)
  - DRUG INEFFECTIVE [None]
  - INTERSTITIAL LUNG DISEASE [None]
  - LYMPHOCYTE STIMULATION TEST POSITIVE [None]
